FAERS Safety Report 7982464-X (Version None)
Quarter: 2011Q4

REPORT INFORMATION
  Report Type: 
  Country: None (occurrence: None)
  Receive Date: 20111215
  Receipt Date: 20111210
  Transmission Date: 20120403
  Serious: Yes (Other)
  Sender: FDA-Public Use
  Company Number: PHHY2010DE11139

PATIENT
  Sex: Female

DRUGS (12)
  1. ATROVENT [Concomitant]
  2. OMEPRAZOLE [Concomitant]
     Dosage: UNK
  3. EUMOTECT [Concomitant]
  4. ALBUTEROL SULFATE AUTOHALER [Concomitant]
  5. OLMESARTAN MEDOXOMIL [Concomitant]
  6. ONBREZ [Suspect]
     Dates: start: 20111001, end: 20111101
  7. SPIRIVA [Concomitant]
  8. ONBREZ [Suspect]
     Indication: DYSPNOEA
     Dosage: 150 UG, UNK
     Dates: start: 20091220
  9. ACETYLSALICYLIC ACID SRT [Concomitant]
     Dosage: UNK
  10. HYDROCHLOROTHIAZIDE [Concomitant]
     Dosage: UNK
  11. NEBIVOLOL HCL [Concomitant]
  12. LEVOTHYROXINE SODIUM [Concomitant]
     Dosage: UNK

REACTIONS (4)
  - BLOOD PRESSURE ABNORMAL [None]
  - RETINAL VEIN THROMBOSIS [None]
  - EYE HAEMORRHAGE [None]
  - VISUAL ACUITY REDUCED [None]
